FAERS Safety Report 6061517-X (Version None)
Quarter: 2009Q1

REPORT INFORMATION
  Report Type: 
  Country: None (occurrence: None)
  Receive Date: 20090202
  Receipt Date: 20090121
  Transmission Date: 20090719
  Serious: Yes (Life-Threatening)
  Sender: FDA-Public Use
  Company Number: JP-ROCHE-610281

PATIENT
  Age: 70 Year
  Sex: Female

DRUGS (1)
  1. XELODA [Suspect]
     Indication: LARGE INTESTINE CARCINOMA
     Dosage: DRUG: XELODA 300
     Route: 048
     Dates: start: 20090109, end: 20090113

REACTIONS (1)
  - EXTRAPYRAMIDAL DISORDER [None]
